FAERS Safety Report 14297683 (Version 3)
Quarter: 2018Q3

REPORT INFORMATION
  Report Type: Report from Study
  Country: US (occurrence: US)
  Receive Date: 20171218
  Receipt Date: 20180917
  Transmission Date: 20181010
  Serious: Yes (Other)
  Sender: FDA-Public Use
  Company Number: US-AMGEN-USASL2017184769

PATIENT
  Age: 69 Year
  Sex: Male

DRUGS (2)
  1. REPATHA [Suspect]
     Active Substance: EVOLOCUMAB
     Indication: BLOOD CHOLESTEROL ABNORMAL
     Dosage: 140 MG, Q2WK
     Route: 065
     Dates: start: 201601
  2. REPATHA [Suspect]
     Active Substance: EVOLOCUMAB
     Indication: HYPERCHOLESTEROLAEMIA
     Dosage: 140 MG, Q2WK
     Route: 065

REACTIONS (16)
  - Dementia [Unknown]
  - Injection site haemorrhage [Unknown]
  - Hypervitaminosis [Unknown]
  - Ill-defined disorder [Unknown]
  - Cataract [Unknown]
  - Injection site erythema [Unknown]
  - Post procedural infection [Unknown]
  - Lipids increased [Unknown]
  - Transient ischaemic attack [Unknown]
  - Visual impairment [Not Recovered/Not Resolved]
  - Skin cancer [Not Recovered/Not Resolved]
  - Dyspnoea [Unknown]
  - Blood triglycerides increased [Unknown]
  - Glaucoma [Unknown]
  - Coagulopathy [Unknown]
  - Adverse event [Unknown]

NARRATIVE: CASE EVENT DATE: 2016
